FAERS Safety Report 8162241-X (Version None)
Quarter: 2012Q1

REPORT INFORMATION
  Report Type: 
  Country: None (occurrence: None)
  Receive Date: 20120224
  Receipt Date: 20120213
  Transmission Date: 20120608
  Serious: Yes (Death, Other)
  Sender: FDA-Public Use
  Company Number: JP-PFIZER INC-2012048507

PATIENT
  Age: 65 Year
  Sex: Male

DRUGS (3)
  1. FUNGUARD [Concomitant]
     Indication: SYSTEMIC MYCOSIS
     Route: 041
  2. IRINOTECAN HCL [Suspect]
     Indication: SMALL CELL LUNG CANCER STAGE UNSPECIFIED
     Route: 041
  3. ETOPOSIDE [Concomitant]
     Indication: SMALL CELL LUNG CANCER STAGE UNSPECIFIED
     Route: 041

REACTIONS (2)
  - TRICHOSPORON INFECTION [None]
  - NEUTROPENIA [None]
